FAERS Safety Report 8001740-8 (Version None)
Quarter: 2011Q4

REPORT INFORMATION
  Report Type: 
  Country: None (occurrence: None)
  Receive Date: 20111222
  Receipt Date: 20111219
  Transmission Date: 20120403
  Serious: Yes (Death)
  Sender: FDA-Public Use
  Company Number: US-PFIZER INC-2011309048

PATIENT
  Age: 86 Year
  Sex: Female

DRUGS (6)
  1. AMLODIPINE BESYLATE [Suspect]
  2. ACETAMINOPHEN [Suspect]
  3. VALSARTAN [Suspect]
  4. ATENOLOL [Suspect]
  5. METFORMIN HYDROCHLORIDE [Suspect]
  6. HYDROCHLOROTHIAZIDE [Suspect]

REACTIONS (1)
  - COMPLETED SUICIDE [None]
